FAERS Safety Report 20016671 (Version 1)
Quarter: 2021Q4

REPORT INFORMATION
  Report Type: Spontaneous
  Country: US (occurrence: None)
  Receive Date: 20211104
  Receipt Date: 20211104
  Transmission Date: 20220303
  Serious: Yes (Death)
  Sender: FDA-Public Use
  Company Number: None

PATIENT
  Age: 85 Year
  Sex: Male
  Weight: 98 kg

DRUGS (12)
  1. ABIRATERONE [Suspect]
     Active Substance: ABIRATERONE
     Indication: Prostate cancer
     Dosage: FREQUENCY : DAILY;?
     Route: 048
  2. Metformin ER 750mg [Concomitant]
  3. LOSARTAN [Concomitant]
     Active Substance: LOSARTAN
  4. ALLOPURINOL [Concomitant]
     Active Substance: ALLOPURINOL
  5. ATORVASTATIN [Concomitant]
     Active Substance: ATORVASTATIN
  6. Diltiazem ER 60mg [Concomitant]
  7. BICALUTAMIDE [Concomitant]
     Active Substance: BICALUTAMIDE
  8. Novolog FlexPen ReliOn [Concomitant]
  9. LANTUS [Concomitant]
     Active Substance: INSULIN GLARGINE
  10. Advil 200mg [Concomitant]
  11. Vitamin D 50mcg [Concomitant]
  12. PREDNISONE [Concomitant]
     Active Substance: PREDNISONE

REACTIONS (1)
  - Death [None]

NARRATIVE: CASE EVENT DATE: 20211104
